FAERS Safety Report 8429496-5 (Version None)
Quarter: 2012Q2

REPORT INFORMATION
  Report Type: 
  Country: None (occurrence: None)
  Receive Date: 20120612
  Receipt Date: 20120606
  Transmission Date: 20120825
  Serious: Yes (Other)
  Sender: FDA-Public Use
  Company Number: JP-PFIZER INC-2012096508

PATIENT
  Age: 66 Year
  Sex: Male

DRUGS (4)
  1. MEROPENEM [Concomitant]
     Indication: MENINGITIS BACTERIAL
     Dosage: 2 G, 3X/DAY
  2. SOLU-MEDROL [Suspect]
     Dosage: 500 MG, 3X/DAY
  3. DEXAMETHASONE [Concomitant]
     Indication: MENINGITIS BACTERIAL
  4. POLYGAM S/D [Concomitant]
     Indication: MENINGITIS BACTERIAL

REACTIONS (2)
  - HEPATIC FUNCTION ABNORMAL [None]
  - DEAFNESS [None]
